FAERS Safety Report 8412360-5 (Version None)
Quarter: 2012Q2

REPORT INFORMATION
  Report Type: 
  Country: None (occurrence: None)
  Receive Date: 20120605
  Receipt Date: 20120523
  Transmission Date: 20120825
  Serious: Yes (Other)
  Sender: FDA-Public Use
  Company Number: US-ELI_LILLY_AND_COMPANY-US201205009064

PATIENT
  Age: 58 Year
  Sex: Female

DRUGS (12)
  1. COLACE [Concomitant]
  2. DEXAMETHASONE [Concomitant]
  3. HYDROCHLOROTHIAZIDE [Concomitant]
  4. COMPAZINE [Concomitant]
     Indication: NAUSEA
  5. CYMBALTA [Suspect]
     Indication: DEPRESSION
     Dosage: 60 MG, QD
  6. BENADRYL [Concomitant]
  7. PRILOSEC [Concomitant]
  8. CLONAZEPAM [Concomitant]
  9. REMERON [Concomitant]
  10. HALDOL [Concomitant]
  11. LEVOTHYROXINE SODIUM [Concomitant]
  12. FENTANYL [Concomitant]

REACTIONS (1)
  - COLON CANCER [None]
